FAERS Safety Report 13523987 (Version 1)
Quarter: 2017Q2

REPORT INFORMATION
  Report Type: Spontaneous
  Country: US (occurrence: US)
  Receive Date: 20170508
  Receipt Date: 20170508
  Transmission Date: 20170830
  Serious: No
  Sender: FDA-Public Use
  Company Number: US-VIFOR (INTERNATIONAL) INC.-VIT-2016-07988

PATIENT
  Age: 60 Year
  Sex: Female

DRUGS (15)
  1. ANAFRANIL [Concomitant]
     Active Substance: CLOMIPRAMINE HYDROCHLORIDE
     Indication: OBSESSIVE-COMPULSIVE DISORDER
  2. LIPITOR [Concomitant]
     Active Substance: ATORVASTATIN CALCIUM
  3. VELTASSA [Suspect]
     Active Substance: PATIROMER
     Route: 048
     Dates: start: 2016, end: 201612
  4. NO DRUG NAME [Concomitant]
  5. VELTASSA [Suspect]
     Active Substance: PATIROMER
     Indication: BLOOD PRESSURE MEASUREMENT
     Route: 048
     Dates: start: 201609, end: 2016
  6. XANAX [Concomitant]
     Active Substance: ALPRAZOLAM
  7. INSULIN GLARGINE [Concomitant]
     Active Substance: INSULIN GLARGINE
  8. VALSARTAN. [Concomitant]
     Active Substance: VALSARTAN
  9. LEXAPRO [Concomitant]
     Active Substance: ESCITALOPRAM OXALATE
     Dosage: 1.5 TABLETS AT NIGHT
  10. GABAPENTIN. [Concomitant]
     Active Substance: GABAPENTIN
  11. LASIX [Concomitant]
     Active Substance: FUROSEMIDE
  12. LASIX [Concomitant]
     Active Substance: FUROSEMIDE
  13. TRICOR [Concomitant]
     Active Substance: FENOFIBRATE
  14. METOPROLOL. [Concomitant]
     Active Substance: METOPROLOL
  15. ACETYLSALICYLIC ACID [Concomitant]
     Active Substance: ASPIRIN

REACTIONS (8)
  - Dyspnoea [Recovered/Resolved]
  - Blood potassium increased [Recovered/Resolved]
  - Off label use [Recovered/Resolved]
  - Abdominal distension [Recovered/Resolved]
  - Abdominal discomfort [Recovered/Resolved]
  - Malaise [Recovered/Resolved]
  - Constipation [Recovered/Resolved]
  - Nausea [Recovered/Resolved]

NARRATIVE: CASE EVENT DATE: 201609
